FAERS Safety Report 7025574-6 (Version None)
Quarter: 2010Q4

REPORT INFORMATION
  Report Type: 
  Country: None (occurrence: None)
  Receive Date: 20101003
  Receipt Date: 20100923
  Transmission Date: 20110411
  Serious: Yes (Hospitalization, Other)
  Sender: FDA-Public Use
  Company Number: PHHY2010US54344

PATIENT
  Sex: Female
  Weight: 117.46 kg

DRUGS (22)
  1. EXTAVIA [Suspect]
     Indication: MULTIPLE SCLEROSIS
     Dosage: 0.25 MG, QOD
     Route: 058
     Dates: start: 20100201
  2. ASPIRIN [Concomitant]
     Dosage: 81 MG, QD
  3. VITAMIN B-12 [Concomitant]
     Dosage: 1000 UG, QD
  4. AMARYL [Concomitant]
     Dosage: 25 MG, QD
  5. GLIPIZIDE [Concomitant]
     Dosage: 2 PILLS BID
  6. KLONOPIN [Concomitant]
     Dosage: 1 MG, QD (HS)
  7. NEURONTIN [Concomitant]
     Dosage: 2 DF, QHS
  8. CALCIUM WITH VITAMIN D [Concomitant]
     Dosage: 1 DF, TID
  9. CAPTOPRIL [Concomitant]
     Dosage: 0.25 MG, TID
  10. ZOCOR [Concomitant]
     Dosage: 40 MG , UNK
  11. TYL-SINUS [Concomitant]
     Dosage: 2 DF, PRN
  12. PAXIL [Concomitant]
     Dosage: 40 MG, QD (IN THE MORNING)
  13. ATENOLOL [Concomitant]
     Dosage: 25 MG, QD
     Route: 048
     Dates: start: 20090813
  14. LITHOBID [Concomitant]
     Dosage: 300 MG, BID
     Dates: start: 20090813
  15. PLAVIX [Concomitant]
     Dosage: 75 MG, QD
     Route: 048
     Dates: start: 20090813
  16. COMBIVENT [Concomitant]
     Dosage: 103-18 MCG/ACT, 2 P QID
     Dates: start: 20090915
  17. PRILOSEC [Concomitant]
     Dosage: 20 MG, QD
     Route: 048
     Dates: start: 20090915
  18. DITROPAN [Concomitant]
     Dosage: 5 MG, BID
     Route: 048
     Dates: start: 20090915
  19. NITROSTAT [Concomitant]
     Dosage: 1 PO PRN
     Dates: start: 20090915
  20. GABAPENTIN [Concomitant]
     Dosage: 2 PILL AT BEDTIME
     Route: 048
  21. CAPOTEN [Concomitant]
     Dosage: 1 PILL TWICE DAILY
     Route: 048
     Dates: start: 20100222
  22. XANAX [Concomitant]
     Dosage: 1 PILL TWICE DAILY
     Route: 048
     Dates: start: 20100222

REACTIONS (12)
  - ARTERIAL OCCLUSIVE DISEASE [None]
  - ARTERIAL STENT INSERTION [None]
  - ATAXIA [None]
  - BENIGN BREAST NEOPLASM [None]
  - BREAST LUMP REMOVAL [None]
  - COGNITIVE DISORDER [None]
  - CONTUSION [None]
  - DIZZINESS [None]
  - FALL [None]
  - FATIGUE [None]
  - INJECTION SITE DISCOLOURATION [None]
  - TREMOR [None]
